FAERS Safety Report 14204987 (Version 1)
Quarter: 2017Q4

REPORT INFORMATION
  Report Type: Spontaneous
  Country: US (occurrence: US)
  Receive Date: 20171119
  Receipt Date: 20171119
  Transmission Date: 20180321
  Serious: Yes (Hospitalization, Other)
  Sender: FDA-Public Use
  Company Number: None

PATIENT
  Age: 69 Year
  Sex: Female
  Weight: 85.5 kg

DRUGS (7)
  1. ZOLOFT GENERIC [Concomitant]
     Active Substance: SERTRALINE HYDROCHLORIDE
  2. ESTRODIAL [Concomitant]
     Active Substance: ESTRADIOL
  3. AZITHROMYCIN TABLETS USP 250MG [Suspect]
     Active Substance: AZITHROMYCIN
     Indication: PNEUMONIA
     Dosage: ?          QUANTITY:2 TABLET(S);OTHER FREQUENCY:2 TAB TO START,;?
     Route: 048
     Dates: start: 20171116, end: 20171116
  4. SENIOR ADULT MULTI VITAMIN [Concomitant]
  5. COQ10 [Concomitant]
     Active Substance: UBIDECARENONE
  6. VITAMINS B12 AND D [Concomitant]
  7. STOOL SOFTENER (DOCUSATE) [Concomitant]
     Active Substance: DOCUSATE

REACTIONS (1)
  - Cerebrovascular accident [None]

NARRATIVE: CASE EVENT DATE: 20171116
